FAERS Safety Report 23543728 (Version 1)
Quarter: 2024Q1

REPORT INFORMATION
  Report Type: Spontaneous
  Country: US (occurrence: US)
  Receive Date: 20240220
  Receipt Date: 20240220
  Transmission Date: 20240410
  Serious: No
  Sender: FDA-Public Use
  Company Number: US-ASTELLAS-2023US037509

PATIENT
  Age: 63 Year
  Sex: Female

DRUGS (2)
  1. VEOZAH [Suspect]
     Active Substance: FEZOLINETANT
     Indication: Hot flush
     Route: 065
     Dates: start: 20231127
  2. VEOZAH [Suspect]
     Active Substance: FEZOLINETANT
     Indication: Night sweats

REACTIONS (6)
  - Sciatica [Not Recovered/Not Resolved]
  - Cough [Recovered/Resolved]
  - Chest pain [Unknown]
  - Musculoskeletal chest pain [Unknown]
  - Nasopharyngitis [Unknown]
  - Gait disturbance [Unknown]

NARRATIVE: CASE EVENT DATE: 20231130
